FAERS Safety Report 6037853-X (Version None)
Quarter: 2009Q1

REPORT INFORMATION
  Report Type: 
  Country: None (occurrence: None)
  Receive Date: 20090114
  Receipt Date: 20090114
  Transmission Date: 20090719
  Serious: No
  Sender: FDA-Public Use
  Company Number: None

PATIENT
  Age: 37 Year
  Sex: Female
  Weight: 73.4827 kg

DRUGS (2)
  1. KENALOG [Suspect]
     Indication: INFLUENZA
     Dosage: 80MG ONCE SQ
     Route: 058
     Dates: start: 20080220, end: 20080220
  2. KENALOG [Suspect]
     Indication: NASOPHARYNGITIS
     Dosage: 80MG ONCE SQ
     Route: 058
     Dates: start: 20080220, end: 20080220

REACTIONS (2)
  - INJECTION SITE DISCOLOURATION [None]
  - SKIN REACTION [None]
